FAERS Safety Report 15130269 (Version 2)
Quarter: 2018Q3

REPORT INFORMATION
  Report Type: Report from Study
  Country: MX (occurrence: MX)
  Receive Date: 20180711
  Receipt Date: 20180719
  Transmission Date: 20181010
  Serious: Yes (Death)
  Sender: FDA-Public Use
  Company Number: PHHY2018MX042441

PATIENT
  Sex: Female
  Weight: 78 kg

DRUGS (3)
  1. CO?DIOVAN [Suspect]
     Active Substance: HYDROCHLOROTHIAZIDE\VALSARTAN
     Indication: HYPERTENSION
     Dosage: 0.5 DF (HYDROCHLOROTHIAZIDE 12.5MG, VALSARTAN 80MG) QD
     Route: 048
  2. BRAXAN [Concomitant]
     Indication: ARRHYTHMIA
     Dosage: 0.5 DF, QD (4 YEARS AGO)
     Route: 065
  3. EBIXA [Concomitant]
     Active Substance: MEMANTINE HYDROCHLORIDE
     Indication: PRODUCT USED FOR UNKNOWN INDICATION
     Dosage: 1 DF, QD (5 YEARS AGO)
     Route: 065

REACTIONS (3)
  - Wrong technique in product usage process [Unknown]
  - Cerebrovascular accident [Fatal]
  - Drug prescribing error [Unknown]
